FAERS Safety Report 10415104 (Version 2)
Quarter: 2014Q3

REPORT INFORMATION
  Report Type: Spontaneous
  Country: US (occurrence: US)
  Receive Date: 20140828
  Receipt Date: 20140828
  Transmission Date: 20150326
  Serious: Yes (Death, Hospitalization, Other)
  Sender: FDA-Public Use
  Company Number: US-009507513-2011SP038550

PATIENT
  Sex: Female
  Weight: 58.97 kg

DRUGS (2)
  1. NUVARING [Suspect]
     Active Substance: ETHINYL ESTRADIOL\ETONOGESTREL
     Dosage: 0.120-0.015 MG, FOR 3 WEEKS THEN OFF 1 WEEK
     Route: 067
     Dates: start: 200811
  2. NUVARING [Suspect]
     Active Substance: ETHINYL ESTRADIOL\ETONOGESTREL
     Indication: CONTRACEPTION
     Dosage: UNK
     Route: 067
     Dates: start: 200907, end: 200908

REACTIONS (14)
  - Cardiovascular disorder [Unknown]
  - Pregnancy [Recovered/Resolved]
  - Cardiomegaly [Unknown]
  - Cardiac arrest [Fatal]
  - Bundle branch block right [Unknown]
  - Headache [Unknown]
  - Pulmonary embolism [Fatal]
  - Postpartum disorder [Unknown]
  - Abdominal discomfort [Unknown]
  - Tricuspid valve disease [Unknown]
  - Depression [Unknown]
  - Bundle branch block left [Unknown]
  - Tricuspid valve incompetence [Unknown]
  - Embolism [Unknown]

NARRATIVE: CASE EVENT DATE: 2008
